FAERS Safety Report 15710209 (Version 1)
Quarter: 2018Q4

REPORT INFORMATION
  Report Type: Spontaneous
  Country: US (occurrence: US)
  Receive Date: 20181211
  Receipt Date: 20181211
  Transmission Date: 20190205
  Serious: No
  Sender: FDA-Public Use
  Company Number: US-INCYTE CORPORATION-2018IN012437

PATIENT

DRUGS (1)
  1. JAKAFI [Suspect]
     Active Substance: RUXOLITINIB
     Indication: LYMPHATIC SYSTEM NEOPLASM
     Dosage: 10 MG, BID
     Route: 048
     Dates: start: 20141009

REACTIONS (4)
  - Off label use [Unknown]
  - Product dose omission [Unknown]
  - Pain in extremity [Unknown]
  - Back pain [Unknown]
